FAERS Safety Report 8349170-3 (Version None)
Quarter: 2012Q2

REPORT INFORMATION
  Report Type: 
  Country: None (occurrence: None)
  Receive Date: 20120510
  Receipt Date: 20120430
  Transmission Date: 20120825
  Serious: Yes (Other)
  Sender: FDA-Public Use
  Company Number: CA-BRISTOL-MYERS SQUIBB COMPANY-16566176

PATIENT
  Age: 41 Year
  Sex: Female

DRUGS (6)
  1. NAPROXEN (ALEVE) [Concomitant]
  2. METHIMAZOLE [Concomitant]
  3. TYLENOL (CAPLET) [Concomitant]
  4. ORENCIA [Suspect]
     Indication: RHEUMATOID ARTHRITIS
     Dosage: LAST DOSE: 7MAR12. INF:3
     Route: 042
     Dates: start: 20120123
  5. METHOTREXATE [Concomitant]
     Dosage: INJECTION
  6. FOLIC ACID [Concomitant]

REACTIONS (1)
  - HYPERTHYROIDISM [None]
